FAERS Safety Report 7124414-4 (Version None)
Quarter: 2010Q4

REPORT INFORMATION
  Report Type: 
  Country: None (occurrence: None)
  Receive Date: 20101126
  Receipt Date: 20101115
  Transmission Date: 20110411
  Serious: Yes (Hospitalization)
  Sender: FDA-Public Use
  Company Number: GXKR2010US12813

PATIENT
  Age: 4 Year
  Sex: Female

DRUGS (1)
  1. METHADONE HCL [Suspect]
     Route: 065

REACTIONS (14)
  - CONVULSION [None]
  - CYANOSIS [None]
  - DEPRESSED LEVEL OF CONSCIOUSNESS [None]
  - ENDOTRACHEAL INTUBATION [None]
  - MIOSIS [None]
  - OVERDOSE [None]
  - PRURITUS [None]
  - PYREXIA [None]
  - RESPIRATORY FAILURE [None]
  - RESUSCITATION [None]
  - SOMNOLENCE [None]
  - STATUS EPILEPTICUS [None]
  - TONGUE PARALYSIS [None]
  - UNRESPONSIVE TO STIMULI [None]
